FAERS Safety Report 9421196 (Version 1)
Quarter: 2013Q3

REPORT INFORMATION
  Report Type: Spontaneous
  Country: US (occurrence: US)
  Receive Date: 20130725
  Receipt Date: 20130725
  Transmission Date: 20140515
  Serious: Yes (Other)
  Sender: FDA-Public Use
  Company Number: US-BAXTER-2013BAX028751

PATIENT
  Sex: Male

DRUGS (4)
  1. DIANEAL LOW CALCIUM [Suspect]
     Indication: PERITONEAL DIALYSIS
     Route: 033
     Dates: start: 20120830
  2. INSULIN [Concomitant]
     Indication: TYPE 2 DIABETES MELLITUS
     Route: 065
  3. LODIPINE [Concomitant]
     Indication: HYPERTENSION
     Route: 065
  4. CARVEDILOL [Concomitant]
     Indication: HYPERTENSION
     Route: 048

REACTIONS (1)
  - Headache [Recovering/Resolving]
